FAERS Safety Report 9177104 (Version 1)
Quarter: 2013Q1

REPORT INFORMATION
  Report Type: Spontaneous
  Country: US (occurrence: None)
  Receive Date: 20130320
  Receipt Date: 20130320
  Transmission Date: 20140127
  Serious: Yes (Life-Threatening)
  Sender: FDA-Public Use
  Company Number: None

PATIENT
  Age: 43 Year
  Sex: Female
  Weight: 67.13 kg

DRUGS (2)
  1. REMICADE [Suspect]
     Indication: BEHCET^S SYNDROME
     Dosage: INFUSIION ONCE MONTHLY
     Dates: start: 20100301, end: 20110301
  2. HUMIRA [Suspect]
     Indication: RHEUMATOID ARTHRITIS
     Dosage: INJECTION WEEKLY
     Dates: start: 20110401, end: 20121101

REACTIONS (1)
  - Breast cancer female [None]
